FAERS Safety Report 4727247-9 (Version None)
Quarter: 2005Q3

REPORT INFORMATION
  Report Type: 
  Country: None (occurrence: None)
  Receive Date: 20050728
  Receipt Date: 20050707
  Transmission Date: 20060218
  Serious: Yes (Hospitalization, Disabling, Other)
  Sender: FDA-Public Use
  Company Number: US-GLAXOSMITHKLINE-A0565328A

PATIENT
  Age: 26 Year
  Sex: Male
  Weight: 89.5 kg

DRUGS (2)
  1. LAMICTAL [Suspect]
     Indication: BIPOLAR DISORDER
     Route: 048
     Dates: start: 20050504, end: 20050705
  2. SYMBYAX [Concomitant]

REACTIONS (5)
  - DRUG ADMINISTRATION ERROR [None]
  - PAINFUL ERECTION [None]
  - PRIAPISM [None]
  - SKIN DISCOLOURATION [None]
  - SOFT TISSUE INJURY [None]
